FAERS Safety Report 22021313 (Version 3)
Quarter: 2023Q1

REPORT INFORMATION
  Report Type: Report from Study
  Country: US (occurrence: US)
  Receive Date: 20230222
  Receipt Date: 20230308
  Transmission Date: 20230417
  Serious: Yes (Death, Other)
  Sender: FDA-Public Use
  Company Number: US-BIOGEN-2023BI01188456

PATIENT
  Age: 53 Year
  Sex: Female

DRUGS (1)
  1. TYSABRI [Suspect]
     Active Substance: NATALIZUMAB
     Indication: Relapsing-remitting multiple sclerosis
     Route: 050
     Dates: start: 20120905, end: 20230128

REACTIONS (3)
  - Ovarian cancer metastatic [Fatal]
  - Colorectal adenocarcinoma [Unknown]
  - Lung adenocarcinoma [Unknown]

NARRATIVE: CASE EVENT DATE: 20230111
